FAERS Safety Report 14823079 (Version 1)
Quarter: 2018Q2

REPORT INFORMATION
  Report Type: Spontaneous
  Country: ES (occurrence: ES)
  Receive Date: 20180427
  Receipt Date: 20180427
  Transmission Date: 20180711
  Serious: Yes (Hospitalization)
  Sender: FDA-Public Use
  Company Number: ES-BAUSCH-BL-2018-011607

PATIENT
  Age: 79 Year
  Sex: Female

DRUGS (7)
  1. BEMIPARINA [Suspect]
     Active Substance: BEMIPARIN SODIUM
     Indication: PROPHYLAXIS
     Route: 058
     Dates: start: 20170622
  2. TARGIN [Suspect]
     Active Substance: NALOXONE HYDROCHLORIDE\OXYCODONE HYDROCHLORIDE
     Indication: CAUDA EQUINA SYNDROME
     Dosage: 10 MG/5 MG 56 TABLETS
     Route: 048
     Dates: start: 20170613
  3. LEVOFLOXACINO [Suspect]
     Active Substance: LEVOFLOXACIN
     Indication: PLEURAL EFFUSION
     Route: 065
     Dates: start: 20170602, end: 20170626
  4. DALACIN [Suspect]
     Active Substance: CLINDAMYCIN
     Indication: PRODUCT USED FOR UNKNOWN INDICATION
     Dosage: 24 CAPSULES
     Route: 048
     Dates: start: 20170609
  5. DULOXETINA [Suspect]
     Active Substance: DULOXETINE
     Indication: ADJUSTMENT DISORDER
     Dosage: 28 CAPSULES
     Route: 048
     Dates: start: 20170613, end: 20170625
  6. HALOPERIDOL. [Suspect]
     Active Substance: HALOPERIDOL
     Indication: PRODUCT USED FOR UNKNOWN INDICATION
     Dosage: DROPS
     Route: 048
     Dates: start: 20170613
  7. METOCLOPRAMIDA [Suspect]
     Active Substance: METOCLOPRAMIDE HYDROCHLORIDE
     Indication: VOMITING
     Dosage: COMPRIMIDOS EFG, 30 COMPRIMIDOS
     Route: 048
     Dates: start: 20170517

REACTIONS (2)
  - Rash maculo-papular [Recovered/Resolved]
  - Pruritus [Recovered/Resolved]

NARRATIVE: CASE EVENT DATE: 20170622
